FAERS Safety Report 14841930 (Version 1)
Quarter: 2018Q2

REPORT INFORMATION
  Report Type: Spontaneous
  Country: DE (occurrence: DE)
  Receive Date: 20180503
  Receipt Date: 20180503
  Transmission Date: 20180711
  Serious: Yes (Life-Threatening, Other)
  Sender: FDA-Public Use
  Company Number: IND-DE-009507513-1804DEU009496

PATIENT
  Age: 62 Year
  Sex: Female
  Weight: 105 kg

DRUGS (2)
  1. ARCOXIA [Suspect]
     Active Substance: ETORICOXIB
     Indication: ARTHRITIS
     Dosage: UNK
     Route: 048
  2. ARCOXIA [Suspect]
     Active Substance: ETORICOXIB
     Dosage: 90 MG, UNK
     Route: 048
     Dates: start: 20180327, end: 2018

REACTIONS (4)
  - Fear of death [Recovered/Resolved]
  - Arrhythmia [Recovered/Resolved]
  - Tachycardia [Recovered/Resolved]
  - Restlessness [Recovered/Resolved]

NARRATIVE: CASE EVENT DATE: 20180327
